FAERS Safety Report 5928320-X (Version None)
Quarter: 2008Q4

REPORT INFORMATION
  Report Type: 
  Country: None (occurrence: None)
  Receive Date: 20081022
  Receipt Date: 20081022
  Transmission Date: 20090506
  Serious: No
  Sender: FDA-Public Use
  Company Number: None

PATIENT
  Age: 49 Year
  Sex: Female
  Weight: 68.0396 kg

DRUGS (2)
  1. ZOLPIDEM TARTRATE [Suspect]
     Indication: INSOMNIA
     Dosage: 1 TABLET 1X EVENING AS NEED PO
     Route: 048
  2. AMBIEN [Suspect]
     Indication: INSOMNIA
     Dates: start: 20060703, end: 20061113

REACTIONS (5)
  - BELLIGERENCE [None]
  - INITIAL INSOMNIA [None]
  - LOGORRHOEA [None]
  - MEMORY IMPAIRMENT [None]
  - PERSONALITY CHANGE [None]
